FAERS Safety Report 5308563-9 (Version None)
Quarter: 2007Q2

REPORT INFORMATION
  Report Type: 
  Country: None (occurrence: None)
  Receive Date: 20070420
  Receipt Date: 20070411
  Transmission Date: 20071010
  Serious: Yes (Hospitalization)
  Sender: FDA-Public Use
  Company Number: GXKR2007GB03374

PATIENT
  Age: 91 Year
  Sex: Female

DRUGS (3)
  1. CO-AMOXICLAV (NGX) (AMOXICILLIN, CLAVULANATE) UNKNOWN [Suspect]
     Indication: LOWER RESPIRATORY TRACT INFECTION
     Dosage: 625 MG, TID, ORAL
     Route: 048
     Dates: start: 20070228, end: 20070306
  2. BENDROFLUAZIDE (BENDROFLUMETHIAZIDE) [Concomitant]
  3. OMEPRAZOLE [Concomitant]

REACTIONS (2)
  - JAUNDICE [None]
  - LIVER FUNCTION TEST ABNORMAL [None]
